FAERS Safety Report 16006826 (Version 1)
Quarter: 2019Q1

REPORT INFORMATION
  Report Type: Spontaneous
  Country: US (occurrence: US)
  Receive Date: 20190222
  Receipt Date: 20190222
  Transmission Date: 20190418
  Serious: No
  Sender: FDA-Public Use
  Company Number: US-ASTRAZENECA-2018SF70749

PATIENT
  Age: 25280 Day
  Sex: Female
  Weight: 108.9 kg

DRUGS (2)
  1. BYDUREON [Suspect]
     Active Substance: EXENATIDE
     Indication: TYPE 2 DIABETES MELLITUS
     Route: 058
     Dates: start: 20181207
  2. TRAJENTA [Concomitant]
     Active Substance: LINAGLIPTIN
     Indication: TYPE 2 DIABETES MELLITUS
     Route: 048

REACTIONS (6)
  - Dyspepsia [Unknown]
  - Wrong technique in product usage process [Unknown]
  - Flatulence [Unknown]
  - Abdominal pain upper [Unknown]
  - Product taste abnormal [Unknown]
  - Eructation [Unknown]

NARRATIVE: CASE EVENT DATE: 20181207
